FAERS Safety Report 21517590 (Version 1)
Quarter: 2022Q4

REPORT INFORMATION
  Report Type: Spontaneous
  Country: FR (occurrence: FR)
  Receive Date: 20221028
  Receipt Date: 20221028
  Transmission Date: 20230113
  Serious: Yes (Hospitalization)
  Sender: FDA-Public Use
  Company Number: None

PATIENT
  Age: 34 Year
  Sex: Female
  Weight: 62 kg

DRUGS (4)
  1. IMPLANON [Suspect]
     Active Substance: ETONOGESTREL
     Indication: Contraception
     Dosage: NR
     Route: 048
     Dates: start: 2008, end: 2014
  2. DESOGESTREL [Suspect]
     Active Substance: DESOGESTREL
     Indication: Oral contraception
     Dosage: 75 MILLIGRAM, QD
     Route: 048
     Dates: start: 2018, end: 2022
  3. LEVONORGESTREL [Suspect]
     Active Substance: LEVONORGESTREL
     Indication: Contraception
     Dosage: NR
     Route: 048
     Dates: start: 2014, end: 2016
  4. ETHINYL ESTRADIOL [Suspect]
     Active Substance: ETHINYL ESTRADIOL
     Indication: Contraception
     Dosage: NR
     Route: 048
     Dates: start: 2014, end: 2016

REACTIONS (2)
  - Disease recurrence [Recovering/Resolving]
  - Meningioma [Recovered/Resolved]

NARRATIVE: CASE EVENT DATE: 20170101
